FAERS Safety Report 18448508 (Version 1)
Quarter: 2020Q4

REPORT INFORMATION
  Report Type: Spontaneous
  Country: US (occurrence: US)
  Receive Date: 20201030
  Receipt Date: 20201030
  Transmission Date: 20210114
  Serious: Yes (Life-Threatening, Other)
  Sender: FDA-Public Use
  Company Number: US-DRREDDYS-USA/USA/20/0128612

PATIENT
  Age: 45 Year
  Sex: Male

DRUGS (6)
  1. AMPHOTERICIN-B [Suspect]
     Active Substance: AMPHOTERICIN B
     Indication: PNEUMONIA
  2. VORICONAZOLE. [Suspect]
     Active Substance: VORICONAZOLE
     Indication: DISSEMINATED COCCIDIOIDOMYCOSIS
  3. AMPHOTERICIN-B [Suspect]
     Active Substance: AMPHOTERICIN B
     Indication: DISSEMINATED COCCIDIOIDOMYCOSIS
  4. VORICONAZOLE. [Suspect]
     Active Substance: VORICONAZOLE
     Indication: PNEUMONIA
  5. FLUCONAZOLE. [Suspect]
     Active Substance: FLUCONAZOLE
     Indication: PNEUMONIA
  6. FLUCONAZOLE. [Suspect]
     Active Substance: FLUCONAZOLE
     Indication: DISSEMINATED COCCIDIOIDOMYCOSIS

REACTIONS (2)
  - Muscular weakness [Unknown]
  - Drug ineffective [Unknown]
